FAERS Safety Report 5772331-4 (Version None)
Quarter: 2008Q2

REPORT INFORMATION
  Report Type: 
  Country: None (occurrence: None)
  Receive Date: 20080613
  Receipt Date: 20080603
  Transmission Date: 20081010
  Serious: Yes (Congenital Anomaly)
  Sender: FDA-Public Use
  Company Number: FR-ROCHE-568561

PATIENT
  Sex: Male
  Weight: 2.6 kg

DRUGS (9)
  1. COPEGUS [Suspect]
  2. VIRAFERONPEG [Suspect]
     Indication: HEPATITIS C
     Dosage: FORM INJECTABLE SOLUTION
  3. LAMICTAL [Suspect]
     Indication: EPILEPSY
  4. PAROXETINE HCL [Suspect]
     Indication: DRUG USE FOR UNKNOWN INDICATION
  5. DEPAKENE [Suspect]
     Indication: EPILEPSY
  6. LEVOTHYROXINE SODIUM [Concomitant]
     Indication: HYPOTHYROIDISM
  7. DOLIPRANE [Concomitant]
  8. CYSTINE-B6 [Concomitant]
  9. CYSTINE-B6 [Concomitant]

REACTIONS (5)
  - DRUG EXPOSURE DURING PREGNANCY [None]
  - MATERNAL DRUGS AFFECTING FOETUS [None]
  - OLIGOHYDRAMNIOS [None]
  - PREGNANCY [None]
  - SKULL MALFORMATION [None]
